FAERS Safety Report 5241108-0 (Version None)
Quarter: 2007Q1

REPORT INFORMATION
  Report Type: 
  Country: None (occurrence: None)
  Receive Date: 20070220
  Receipt Date: 20070205
  Transmission Date: 20070707
  Serious: Yes (Hospitalization, Other)
  Sender: FDA-Public Use
  Company Number: US-JNJFOC-20060806159

PATIENT
  Sex: Male
  Weight: 69.4 kg

DRUGS (24)
  1. REMICADE [Suspect]
     Route: 042
  2. REMICADE [Suspect]
     Route: 042
  3. REMICADE [Suspect]
     Route: 042
  4. REMICADE [Suspect]
     Route: 042
  5. REMICADE [Suspect]
     Indication: RHEUMATOID ARTHRITIS
     Dosage: TWO INFUSIONS/UNSPECIFIED DOSE/UNKNOWN DATES
     Route: 042
  6. METHOTREXATE [Concomitant]
     Indication: RHEUMATOID ARTHRITIS
     Route: 048
  7. ARAVA [Concomitant]
     Route: 048
  8. FOLIC ACID [Concomitant]
  9. PREDNISONE [Concomitant]
     Indication: RHEUMATOID ARTHRITIS
     Route: 048
  10. FOSAMAX [Concomitant]
     Route: 048
  11. FOSAMAX [Concomitant]
     Indication: OSTEOPOROSIS
     Route: 048
  12. OXYCODONE HCL [Concomitant]
     Indication: PAIN
     Dosage: DOSE: 10/325
  13. OXYCONTIN [Concomitant]
     Route: 048
  14. OXYCONTIN [Concomitant]
     Indication: PAIN
     Route: 048
  15. ARTHROTEC [Concomitant]
     Dosage: 75-200 MG-MCG, 1 TAB 2 TIMES DAILY AFTER MEALS
     Route: 048
  16. LIPITOR [Concomitant]
     Route: 048
  17. ADVAIR DISKUS 100/50 [Concomitant]
  18. PROTONIX [Concomitant]
     Route: 048
  19. LEUCOVORIN CALCIUM [Concomitant]
     Route: 048
  20. TRAZODONE HCL [Concomitant]
     Route: 048
  21. CYMBALTA [Concomitant]
  22. MULTIVIT [Concomitant]
     Route: 048
  23. CALCIUM [Concomitant]
     Route: 048
  24. PERCOCET [Concomitant]
     Indication: BREAKTHROUGH PAIN

REACTIONS (9)
  - BENIGN LUNG NEOPLASM [None]
  - DYSPHONIA [None]
  - HYPERSENSITIVITY [None]
  - LARYNGEAL NEOPLASM [None]
  - LARYNGITIS [None]
  - PHARYNGEAL NEOPLASM [None]
  - PNEUMONIA [None]
  - PULMONARY FIBROSIS [None]
  - WEIGHT DECREASED [None]
